FAERS Safety Report 23183104 (Version 1)
Quarter: 2023Q4

REPORT INFORMATION
  Report Type: Spontaneous
  Country: GB (occurrence: GB)
  Receive Date: 20231114
  Receipt Date: 20231114
  Transmission Date: 20240110
  Serious: Yes (Other)
  Sender: FDA-Public Use
  Company Number: None

PATIENT
  Age: 47 Year
  Sex: Female
  Weight: 68 kg

DRUGS (3)
  1. LEVOTHYROXINE [Suspect]
     Active Substance: LEVOTHYROXINE
     Indication: Product used for unknown indication
     Route: 065
     Dates: start: 20230801, end: 20231005
  2. LEVOTHYROXINE SODIUM ANHYDROUS [Concomitant]
     Active Substance: LEVOTHYROXINE SODIUM ANHYDROUS
     Indication: Product used for unknown indication
     Dosage: STRENGTH: 50 MCG
  3. OMEPRAZOLE [Concomitant]
     Active Substance: OMEPRAZOLE
     Indication: Product used for unknown indication

REACTIONS (13)
  - Nausea [Recovering/Resolving]
  - Headache [Recovering/Resolving]
  - Pain of skin [Recovering/Resolving]
  - Sinus pain [Recovering/Resolving]
  - Dizziness [Recovering/Resolving]
  - Palpitations [Not Recovered/Not Resolved]
  - Chest discomfort [Not Recovered/Not Resolved]
  - Paraesthesia oral [Recovering/Resolving]
  - Rash [Recovered/Resolved]
  - Fatigue [Recovering/Resolving]
  - Arthralgia [Recovering/Resolving]
  - Arthralgia [Recovering/Resolving]
  - Product substitution issue [Unknown]

NARRATIVE: CASE EVENT DATE: 20230801
